FAERS Safety Report 8937147 (Version 2)
Quarter: 2013Q2

REPORT INFORMATION
  Report Type: Spontaneous
  Country: FR (occurrence: None)
  Receive Date: 20121123
  Receipt Date: 20130607
  Transmission Date: 20140414
  Serious: Yes (Congenital Anomaly)
  Sender: FDA-Public Use
  Company Number: 7174635

PATIENT
  Age: 0 Day
  Sex: Female

DRUGS (3)
  1. LEVOTHYROX (LEVOTHYROXINE SODIUM) INFUSION [Suspect]
     Indication: FOETAL EXPOSURE TIMING UNSPECIFIED
     Dosage: PRODUCT TAKEN BY MOTHER
  2. TRILEPTAL [Suspect]
     Indication: FOETAL EXPOSURE TIMING UNSPECIFIED
     Dosage: PRODUCT TAKEN BY MOTHER
  3. URBANYL [Suspect]
     Dosage: PRODUCT TAKEN BY MOTHER

REACTIONS (3)
  - Maternal drugs affecting foetus [None]
  - Congenital anomaly [None]
  - Iris coloboma [None]
